FAERS Safety Report 9123829 (Version 1)
Quarter: 2013Q1

REPORT INFORMATION
  Report Type: Spontaneous
  Country: US (occurrence: US)
  Receive Date: 20130116
  Receipt Date: 20130116
  Transmission Date: 20140127
  Serious: Yes (Death, Other)
  Sender: FDA-Public Use
  Company Number: US-PFIZER INC-2013016551

PATIENT
  Sex: Male

DRUGS (1)
  1. EPIPEN [Suspect]
     Indication: FOOD ALLERGY
     Dosage: UNK

REACTIONS (5)
  - Incorrect dose administered [Fatal]
  - Brain hypoxia [Fatal]
  - Cardiac arrest [Unknown]
  - Vomiting [Unknown]
  - Aspiration [Unknown]
